FAERS Safety Report 23199926 (Version 1)
Quarter: 2023Q4

REPORT INFORMATION
  Report Type: Spontaneous
  Country: US (occurrence: US)
  Receive Date: 20231117
  Receipt Date: 20231117
  Transmission Date: 20240110
  Serious: No
  Sender: FDA-Public Use
  Company Number: US-TEVA-2023-US-2946790

PATIENT
  Sex: Female

DRUGS (5)
  1. PROPRANOLOL [Suspect]
     Active Substance: PROPRANOLOL HYDROCHLORIDE
     Indication: Atrial fibrillation
     Dosage: 30 MILLIGRAM DAILY; 10 MG IN THE MORNING, 20 MG IN THE EVENING
     Route: 065
  2. BRIUMVI [Suspect]
     Active Substance: UBLITUXIMAB-XIIY
     Indication: Product used for unknown indication
     Dosage: 100ML/HR
     Route: 065
     Dates: start: 20231010
  3. BENADRYL [Concomitant]
     Active Substance: DIPHENHYDRAMINE HYDROCHLORIDE
     Indication: Product used for unknown indication
     Dosage: EVERY 6HRS
     Route: 065
  4. TYLENOL [Concomitant]
     Active Substance: ACETAMINOPHEN
     Indication: Product used for unknown indication
     Dosage: EXTRA STRENGTH TWICE A DAY
     Route: 065
  5. PEPCID [Concomitant]
     Active Substance: FAMOTIDINE
     Indication: Product used for unknown indication
     Dosage: POST INFUSION
     Route: 065

REACTIONS (11)
  - Cough [Unknown]
  - Throat irritation [Unknown]
  - Influenza [Unknown]
  - Erythema [Recovered/Resolved]
  - Feeling hot [Unknown]
  - Arthralgia [Unknown]
  - Dysphonia [Unknown]
  - Lymphadenopathy [Unknown]
  - Headache [Unknown]
  - Fatigue [Unknown]
  - Body temperature increased [Unknown]

NARRATIVE: CASE EVENT DATE: 20231011
